FAERS Safety Report 15585433 (Version 5)
Quarter: 2019Q2

REPORT INFORMATION
  Report Type: Report from Study
  Country: US (occurrence: US)
  Receive Date: 20181102
  Receipt Date: 20190404
  Transmission Date: 20190711
  Serious: Yes (Hospitalization, Other)
  Sender: FDA-Public Use
  Company Number: US-TESAROUBC-2018-TSO0968-US

PATIENT
  Age: 67 Year
  Sex: Female

DRUGS (5)
  1. ZEJULA [Suspect]
     Active Substance: NIRAPARIB
     Dosage: 100MG 2 DAYS ON AND ONE DAY OFF
     Route: 048
  2. ZEJULA [Suspect]
     Active Substance: NIRAPARIB
     Dosage: 100 MG, EVERY OTHER DAY OR PER WEEK
     Route: 048
     Dates: start: 20181015
  3. ZEJULA [Suspect]
     Active Substance: NIRAPARIB
     Dosage: 100 MG, TAKE (1) 100MG CAP EVERY 2 DAYS THEN OFF A DAY
     Route: 048
  4. ZEJULA [Suspect]
     Active Substance: NIRAPARIB
     Dosage: 100 MG, DAILY PM WITHOUT FOOD
     Route: 048
     Dates: start: 20190401
  5. ZEJULA [Suspect]
     Active Substance: NIRAPARIB
     Indication: OVARIAN CANCER
     Dosage: 300 MG, UNK
     Route: 048
     Dates: start: 20180813, end: 2018

REACTIONS (7)
  - Malignant neoplasm progression [Unknown]
  - Hospitalisation [Not Recovered/Not Resolved]
  - Contrast media allergy [Unknown]
  - Scan abnormal [Unknown]
  - Inappropriate schedule of product administration [Unknown]
  - Glossodynia [Unknown]
  - Oesophageal spasm [Unknown]

NARRATIVE: CASE EVENT DATE: 2018
